FAERS Safety Report 9210010 (Version 2)
Quarter: 2013Q3

REPORT INFORMATION
  Report Type: Spontaneous
  Country: US (occurrence: US)
  Receive Date: 20130404
  Receipt Date: 20130711
  Transmission Date: 20140515
  Serious: No
  Sender: FDA-Public Use
  Company Number: US-ASTELLAS-2013US002632

PATIENT
  Sex: Male

DRUGS (2)
  1. MYRBETRIQ [Suspect]
     Indication: MICTURITION URGENCY
     Dosage: UNK
     Route: 048
  2. MYRBETRIQ [Suspect]
     Indication: INCONTINENCE

REACTIONS (1)
  - Urine output decreased [Unknown]
